FAERS Safety Report 19815026 (Version 1)
Quarter: 2021Q3

REPORT INFORMATION
  Report Type: Spontaneous
  Country: US (occurrence: US)
  Receive Date: 20210910
  Receipt Date: 20210910
  Transmission Date: 20211014
  Serious: No
  Sender: FDA-Public Use
  Company Number: US-PFIZER INC-2020376152

PATIENT
  Age: 60 Year
  Sex: Female

DRUGS (1)
  1. LYRICA [Suspect]
     Active Substance: PREGABALIN
     Indication: LEG AMPUTATION
     Dosage: 100 MG, 2X/DAY (ONE CAPSULE BY MOUTH TWICE A DAY)
     Route: 048

REACTIONS (2)
  - Off label use [Unknown]
  - Nasopharyngitis [Unknown]
